FAERS Safety Report 9587659 (Version 2)
Quarter: 2013Q4

REPORT INFORMATION
  Report Type: Spontaneous
  Country: JP (occurrence: JP)
  Receive Date: 20131003
  Receipt Date: 20131025
  Transmission Date: 20140711
  Serious: Yes (Life-Threatening)
  Sender: FDA-Public Use
  Company Number: JP-BAXTER-2013BAX038555

PATIENT
  Age: 56 Year
  Sex: Male

DRUGS (12)
  1. ENDOXAN 1G [Suspect]
     Indication: INTERSTITIAL LUNG DISEASE
     Route: 041
     Dates: start: 20130726
  2. PREDONINE [Suspect]
     Indication: DERMATOMYOSITIS
     Route: 048
     Dates: start: 20081116, end: 20130723
  3. PREDONINE [Suspect]
     Route: 048
     Dates: start: 20130724, end: 20130805
  4. AMLODIPINE BESILATE [Suspect]
     Indication: HYPERTENSION
     Route: 048
  5. BAKTAR [Concomitant]
     Indication: INFECTION PROPHYLAXIS
     Route: 048
  6. NU-LOTAN [Concomitant]
     Indication: HYPERTENSION
     Route: 048
     Dates: end: 20130805
  7. LASIX [Concomitant]
     Indication: OEDEMA
     Route: 048
  8. TAKEPRON [Concomitant]
     Indication: GASTRIC ULCER
     Route: 048
  9. ALOSITOL [Concomitant]
     Indication: HYPERURICAEMIA
     Route: 048
     Dates: end: 20130805
  10. BONALON [Concomitant]
     Indication: OSTEOPOROSIS
     Route: 048
  11. CICLOSPORIN [Concomitant]
     Indication: PRODUCT USED FOR UNKNOWN INDICATION
     Route: 048
     Dates: start: 20081116, end: 20130723
  12. GABEXATE [Concomitant]
     Indication: PRODUCT USED FOR UNKNOWN INDICATION
     Route: 065
     Dates: end: 20130809

REACTIONS (2)
  - Mesenteric panniculitis [Recovering/Resolving]
  - Pancreatitis acute [Recovering/Resolving]
